FAERS Safety Report 22541678 (Version 1)
Quarter: 2023Q2

REPORT INFORMATION
  Report Type: Spontaneous
  Country: FR (occurrence: None)
  Receive Date: 20230609
  Receipt Date: 20230609
  Transmission Date: 20230722
  Serious: Yes (Other)
  Sender: FDA-Public Use
  Company Number: 2023A131154

PATIENT
  Age: 65 Year
  Sex: Male

DRUGS (1)
  1. DAPAGLIFLOZIN [Suspect]
     Active Substance: DAPAGLIFLOZIN
     Indication: Cardiac failure
     Dosage: 1 DAILY
     Route: 048
     Dates: start: 20221201, end: 20230228

REACTIONS (1)
  - Systemic lupus erythematosus rash [Not Recovered/Not Resolved]

NARRATIVE: CASE EVENT DATE: 20221201
